FAERS Safety Report 8369897-7 (Version None)
Quarter: 2012Q2

REPORT INFORMATION
  Report Type: 
  Country: None (occurrence: None)
  Receive Date: 20120518
  Receipt Date: 20120510
  Transmission Date: 20120825
  Serious: Yes (Other)
  Sender: FDA-Public Use
  Company Number: JP-VERTEX PHARMACEUTICALS INC.-AE-2012-007092

PATIENT
  Age: 58 Year
  Sex: Female

DRUGS (11)
  1. ACETAMINOPHEN [Concomitant]
     Route: 048
     Dates: start: 20120312
  2. RIBAVIRIN [Concomitant]
     Indication: HEPATITIS C
     Route: 048
  3. CARVEDILOL [Concomitant]
     Route: 048
  4. TELAVIC (TELAPREVIR) [Suspect]
     Indication: HEPATITIS C
     Route: 048
     Dates: start: 20120321
  5. AMLODIPINE [Concomitant]
     Route: 048
  6. GASMOTIN [Concomitant]
     Route: 048
  7. MAGMITT [Concomitant]
     Route: 048
  8. PEG-INTRON [Concomitant]
     Indication: HEPATITIS C
     Route: 051
     Dates: start: 20120321, end: 20120321
  9. PEG-INTRON [Concomitant]
     Route: 051
     Dates: start: 20120328
  10. FERRUM [Concomitant]
     Route: 048
  11. NATEGLINIDE [Concomitant]
     Route: 048

REACTIONS (4)
  - HYPERURICAEMIA [None]
  - RASH PRURITIC [None]
  - NEUTROPHIL COUNT DECREASED [None]
  - PLATELET COUNT DECREASED [None]
